FAERS Safety Report 6253893-X (Version None)
Quarter: 2009Q3

REPORT INFORMATION
  Report Type: 
  Country: None (occurrence: None)
  Receive Date: 20090702
  Receipt Date: 20090622
  Transmission Date: 20100115
  Serious: Yes (Other)
  Sender: FDA-Public Use
  Company Number: PHHY2009GB25371

PATIENT
  Sex: Male

DRUGS (2)
  1. CLOZARIL [Suspect]
     Indication: SCHIZOPHRENIA
     Dosage: 12.5 MG, BID
     Route: 048
     Dates: start: 20090604
  2. CLOZARIL [Suspect]
     Dosage: 25 MG, BID
     Route: 048
     Dates: end: 20090620

REACTIONS (4)
  - BODY TEMPERATURE FLUCTUATION [None]
  - C-REACTIVE PROTEIN INCREASED [None]
  - LOWER RESPIRATORY TRACT INFECTION [None]
  - SINUS TACHYCARDIA [None]
